FAERS Safety Report 7726151-1 (Version None)
Quarter: 2011Q3

REPORT INFORMATION
  Report Type: 
  Country: None (occurrence: None)
  Receive Date: 20110902
  Receipt Date: 20110824
  Transmission Date: 20111222
  Serious: Yes (Other)
  Sender: FDA-Public Use
  Company Number: US-ABBOTT-11P-163-0849078-00

PATIENT
  Age: 54 Year
  Sex: Male
  Weight: 79.904 kg

DRUGS (6)
  1. FOLIC ACID [Concomitant]
     Route: 048
     Dates: start: 20110405
  2. HUMIRA [Suspect]
     Indication: RHEUMATOID ARTHRITIS
     Route: 058
     Dates: start: 20110405, end: 20110811
  3. METHOTREXATE [Suspect]
     Indication: RHEUMATOID ARTHRITIS
     Route: 048
     Dates: start: 20110412, end: 20110811
  4. TRAMADOL HYDROCHLORIDE [Concomitant]
     Indication: PAIN
     Route: 048
     Dates: start: 20100601
  5. PREDNISONE [Concomitant]
     Indication: RHEUMATOID ARTHRITIS
     Route: 048
     Dates: start: 20101228
  6. FOLIC ACID [Concomitant]
     Indication: ROUTINE HEALTH MAINTENANCE
     Route: 048
     Dates: start: 20100701, end: 20110404

REACTIONS (3)
  - EYE SWELLING [None]
  - RASH PAPULAR [None]
  - SWELLING FACE [None]
